FAERS Safety Report 7707189-7 (Version None)
Quarter: 2011Q3

REPORT INFORMATION
  Report Type: 
  Country: None (occurrence: None)
  Receive Date: 20110824
  Receipt Date: 20110712
  Transmission Date: 20111222
  Serious: No
  Sender: FDA-Public Use
  Company Number: US-ALLERGAN-1109410US

PATIENT
  Age: 50 Year
  Sex: Female

DRUGS (1)
  1. OZURDEX [Suspect]
     Indication: PRODUCT USED FOR UNKNOWN INDICATION
     Dosage: UNK
     Dates: start: 20110501, end: 20110501

REACTIONS (2)
  - CORNEAL OEDEMA [None]
  - DEVICE DISLOCATION [None]
